FAERS Safety Report 7728345-8 (Version None)
Quarter: 2011Q3

REPORT INFORMATION
  Report Type: 
  Country: None (occurrence: None)
  Receive Date: 20110905
  Receipt Date: 20110901
  Transmission Date: 20111222
  Serious: Yes (Death, Hospitalization)
  Sender: FDA-Public Use
  Company Number: PHEH2011US01646

PATIENT
  Sex: Male

DRUGS (3)
  1. RECLAST [Suspect]
     Indication: OSTEOPOROSIS
     Dosage: 5 MG, ONCE ANNUALLY
     Route: 042
     Dates: start: 20081001
  2. RECLAST [Suspect]
     Dosage: 5 MG, ONCE ANNUALLY
     Route: 042
     Dates: start: 20101004
  3. RECLAST [Suspect]
     Dosage: 5 MG, ONCE ANNUALLY
     Route: 042
     Dates: start: 20091002

REACTIONS (3)
  - PNEUMONIA [None]
  - FALL [None]
  - HIP FRACTURE [None]
